FAERS Safety Report 14609577 (Version 1)
Quarter: 2018Q1

REPORT INFORMATION
  Report Type: Spontaneous
  Country: US (occurrence: US)
  Receive Date: 20180307
  Receipt Date: 20180307
  Transmission Date: 20180509
  Serious: Yes (Other)
  Sender: FDA-Public Use
  Company Number: None

PATIENT
  Age: 31 Year
  Sex: Female
  Weight: 73.03 kg

DRUGS (2)
  1. TRINESSA [Suspect]
     Active Substance: ETHINYL ESTRADIOL\NORGESTIMATE
  2. VELIVET TRIPHASIC REGIMEN [Suspect]
     Active Substance: DESOGESTREL\ETHINYL ESTRADIOL

REACTIONS (4)
  - Visual impairment [None]
  - Eye irritation [None]
  - Contact lens intolerance [None]
  - Photophobia [None]
